FAERS Safety Report 19184546 (Version 2)
Quarter: 2021Q2

REPORT INFORMATION
  Report Type: Spontaneous
  Country: JP (occurrence: JP)
  Receive Date: 20210427
  Receipt Date: 20210521
  Transmission Date: 20210717
  Serious: No
  Sender: FDA-Public Use
  Company Number: JP-ASTELLAS-2021JP007744

PATIENT
  Age: 8 Decade
  Sex: Male

DRUGS (11)
  1. BETANIS [Suspect]
     Active Substance: MIRABEGRON
     Route: 048
     Dates: start: 20200831, end: 20210414
  2. ZALUTIA [Suspect]
     Active Substance: TADALAFIL
     Indication: PRODUCT USED FOR UNKNOWN INDICATION
     Dosage: 5 MG/DAY, UNKNOWN FREQ.
     Route: 048
     Dates: start: 20200805, end: 20210414
  3. CANDESARTAN. [Concomitant]
     Active Substance: CANDESARTAN
     Indication: PRODUCT USED FOR UNKNOWN INDICATION
     Dosage: 4 MG/DAY, UNKNOWN FREQ.
     Route: 048
  4. LANTUS XR [Concomitant]
     Active Substance: INSULIN GLARGINE
     Indication: PRODUCT USED FOR UNKNOWN INDICATION
     Dosage: UNK UNK, UNKNOWN FREQ.
     Route: 060
  5. BETANIS [Suspect]
     Active Substance: MIRABEGRON
     Indication: HYPERTONIC BLADDER
     Dosage: 25 MG/DAY, UNKNOWN FREQ.
     Route: 048
     Dates: start: 20200805, end: 20200830
  6. SUINY [Concomitant]
     Active Substance: ANAGLIPTIN
     Indication: PRODUCT USED FOR UNKNOWN INDICATION
     Dosage: 100 MG/DAY, UNKNOWN FREQ.
     Route: 048
  7. MOHRUS [Concomitant]
     Active Substance: KETOPROFEN
     Indication: PRODUCT USED FOR UNKNOWN INDICATION
     Dosage: UNK UNK, UNKNOWN FREQ.
     Route: 050
  8. CASODEX [Concomitant]
     Active Substance: BICALUTAMIDE
     Indication: PRODUCT USED FOR UNKNOWN INDICATION
     Dosage: 80 MG/DAY, UNKNOWN FREQ.
     Route: 048
  9. MEVALOTIN [Concomitant]
     Active Substance: PRAVASTATIN SODIUM
     Indication: PRODUCT USED FOR UNKNOWN INDICATION
     Dosage: 10 MG/DAY, UNKNOWN FREQ.
     Route: 048
  10. GONAX [Concomitant]
     Active Substance: DEGARELIX
     Indication: PROSTATE CANCER
     Dosage: UNK UNK, EVERY 12 WEEKS
     Route: 058
  11. NOVORAPID [Concomitant]
     Active Substance: INSULIN ASPART
     Indication: PRODUCT USED FOR UNKNOWN INDICATION
     Dosage: UNK UNK, UNKNOWN FREQ.
     Route: 058

REACTIONS (4)
  - Malaise [Recovered/Resolved]
  - Ventricular extrasystoles [Recovering/Resolving]
  - Dizziness [Recovered/Resolved]
  - Photopsia [Recovered/Resolved]

NARRATIVE: CASE EVENT DATE: 20210414
